FAERS Safety Report 7033112-7 (Version None)
Quarter: 2010Q4

REPORT INFORMATION
  Report Type: 
  Country: None (occurrence: None)
  Receive Date: 20101007
  Receipt Date: 20101004
  Transmission Date: 20110411
  Serious: Yes (Hospitalization, Other)
  Sender: FDA-Public Use
  Company Number: CA-PFIZER INC-2010110288

PATIENT
  Age: 72 Year
  Sex: Male

DRUGS (8)
  1. DOXYCYCLINE HYCLATE [Suspect]
     Indication: COUGH
     Dosage: 100 MG, 2X/DAY
     Route: 048
  2. DOXYCYCLINE HYCLATE [Suspect]
     Indication: PRODUCTIVE COUGH
  3. LOVASTATIN [Suspect]
     Dosage: 20 MG, 2X/DAY
     Route: 048
  4. DANAZOL [Suspect]
     Indication: IDIOPATHIC THROMBOCYTOPENIC PURPURA
     Dosage: 200 MG, 3X/DAY
     Route: 048
  5. ATENOLOL [Suspect]
     Dosage: 50 MG, 1X/DAY
     Route: 048
  6. ACETYLSALICYLIC ACID [Suspect]
     Dosage: 325 MG, 3X/DAY
     Route: 048
  7. DIPYRIDAMOLE [Suspect]
     Dosage: 75 MG, 3X/DAY
     Route: 048
  8. PREDNISONE [Suspect]
     Indication: IDIOPATHIC THROMBOCYTOPENIC PURPURA
     Dosage: 10 MG, EVERY OTHER DAY
     Route: 048

REACTIONS (2)
  - DRUG INTERACTION [None]
  - RHABDOMYOLYSIS [None]
